FAERS Safety Report 16317420 (Version 2)
Quarter: 2019Q3

REPORT INFORMATION
  Report Type: Spontaneous
  Country: US (occurrence: US)
  Receive Date: 20190516
  Receipt Date: 20190809
  Transmission Date: 20191004
  Serious: No
  Sender: FDA-Public Use
  Company Number: US-GLAXOSMITHKLINE-US2019083252

PATIENT
  Age: 16 Year
  Sex: Female

DRUGS (1)
  1. BENLYSTA [Suspect]
     Active Substance: BELIMUMAB
     Indication: SYSTEMIC LUPUS ERYTHEMATOSUS
     Dosage: 200 MG/ML, WE
     Dates: start: 2017

REACTIONS (8)
  - Injection site bruising [Unknown]
  - Rhinorrhoea [Unknown]
  - Exposure via skin contact [Unknown]
  - Headache [Unknown]
  - Malaise [Unknown]
  - Accidental exposure to product [Unknown]
  - Sneezing [Unknown]
  - Underdose [Unknown]

NARRATIVE: CASE EVENT DATE: 20190505
